FAERS Safety Report 9411077 (Version 1)
Quarter: 2013Q3

REPORT INFORMATION
  Report Type: Spontaneous
  Country: US (occurrence: US)
  Receive Date: 20130720
  Receipt Date: 20130720
  Transmission Date: 20140515
  Serious: No
  Sender: FDA-Public Use
  Company Number: US-B.I. PHARMACEUTICALS,INC./RIDGEFIELD-2013-BI-20777BP

PATIENT
  Age: 55 Year
  Sex: Female
  Weight: 82 kg

DRUGS (19)
  1. COMBIVENT [Suspect]
     Indication: CHRONIC OBSTRUCTIVE PULMONARY DISEASE
     Dosage: STRENGTH: 20 MCG / 100 MCG; DAILY DOSE: 40 MCG/ 200MCG
     Route: 055
     Dates: start: 20130705
  2. LANTUS INSULIN [Concomitant]
     Indication: DIABETES MELLITUS
     Dosage: (SUBCUTANEOUS) STRENGTH: 25 UNITS; DAILY DOSE: 58 UNITS
     Route: 058
  3. LANTUS INSULIN [Concomitant]
     Dosage: (SUBCUTANEOUS) STRENGTH: 33 UNITS; DAILY DOSE: 58 UNITS
     Route: 058
  4. SINGULAIR [Concomitant]
     Indication: ASTHMA
     Dosage: 10 MG
     Route: 048
  5. METHOCARBAMOL [Concomitant]
     Indication: PAIN
     Dosage: 1500 MG
     Route: 048
  6. ONDANSETRON HCL [Concomitant]
     Indication: NAUSEA
     Route: 048
  7. PROAIR [Concomitant]
     Indication: ASTHMA
     Dosage: (INHALATION AEROSOL)
     Route: 055
  8. PROTONIX [Concomitant]
     Indication: GASTROOESOPHAGEAL REFLUX DISEASE
     Dosage: 40 MG
     Route: 048
  9. HYDROXYZINE [Concomitant]
     Indication: ECZEMA
     Dosage: 50 MG
     Route: 048
  10. LIPITOR [Concomitant]
     Indication: BLOOD CHOLESTEROL INCREASED
     Dosage: 40 MG
     Route: 048
  11. DILTIAZEM [Concomitant]
     Indication: CARDIAC MURMUR
     Dosage: 240 MG
     Route: 048
  12. TOPAMAX [Concomitant]
     Indication: EPILEPSY
     Dosage: 300 MG
     Route: 048
  13. ZOLPIDEM [Concomitant]
     Indication: INSOMNIA
     Dosage: 10 MG
     Route: 048
  14. ELAVIL [Concomitant]
     Indication: MIGRAINE
     Dosage: 50 MG
     Route: 048
  15. KEPPRA [Concomitant]
     Indication: EPILEPSY
     Dosage: 1500 MG
     Route: 048
  16. BENADRYL [Concomitant]
     Indication: SEASONAL ALLERGY
     Dosage: 100 MG
     Route: 048
  17. ADVAIR [Concomitant]
     Indication: ASTHMA
     Dosage: (INHALATION AEROSOL) STRENGTH: 100/50 MG; DAILY DOSE: 200/ 100 MG
     Route: 055
  18. HUMULOG INSULIN [Concomitant]
     Indication: DIABETES MELLITUS
     Dosage: (SUBCUTANEOUS)
     Route: 058
  19. AMLODIPINE [Concomitant]
     Indication: HYPERTENSION
     Dosage: 20 MG
     Route: 048

REACTIONS (3)
  - Drug prescribing error [Not Recovered/Not Resolved]
  - Wheezing [Not Recovered/Not Resolved]
  - Dyspnoea [Not Recovered/Not Resolved]
